FAERS Safety Report 7075344-8 (Version None)
Quarter: 2010Q4

REPORT INFORMATION
  Report Type: 
  Country: None (occurrence: None)
  Receive Date: 20101030
  Receipt Date: 20100816
  Transmission Date: 20110411
  Serious: No
  Sender: FDA-Public Use
  Company Number: US-WYE-H16771010

PATIENT
  Age: 81 Year
  Sex: Female
  Weight: 50.85 kg

DRUGS (9)
  1. ALAVERT [Suspect]
     Indication: HYPERSENSITIVITY
     Dosage: UNKNOWN
     Route: 048
     Dates: start: 20100803
  2. ISOSORBIDE MONONITRATE [Concomitant]
  3. LISINOPRIL [Concomitant]
  4. OXYBUTYNIN [Concomitant]
  5. ACETYLSALICYLIC ACID SRT [Concomitant]
  6. ESTRADIOL [Concomitant]
  7. SIMVASTATIN [Concomitant]
  8. CARVEDILOL [Concomitant]
  9. SYNTHROID [Concomitant]

REACTIONS (1)
  - DRUG EFFECT DECREASED [None]
